FAERS Safety Report 23982095 (Version 2)
Quarter: 2024Q2

REPORT INFORMATION
  Report Type: Report from Study
  Country: DE (occurrence: DE)
  Receive Date: 20240617
  Receipt Date: 20240625
  Transmission Date: 20240715
  Serious: Yes (Other)
  Sender: FDA-Public Use
  Company Number: DE-Merck Healthcare KGaA-2024022025

PATIENT
  Age: 56 Year
  Sex: Female

DRUGS (3)
  1. REBIF [Suspect]
     Active Substance: INTERFERON BETA-1A
     Indication: Multiple sclerosis
     Dosage: THERAPY START DATE: MAYBE 2007 OR 2009 (15-17 YEARS AGO AS OF 10-JUN-2024)
     Route: 058
  2. REBIF [Suspect]
     Active Substance: INTERFERON BETA-1A
  3. VERTIGOHEEL [AMBERGRIS;ANAMIRTA COCCULUS;CONIUM MACULATUM;HOMEOPATHICS [Concomitant]
     Indication: Product used for unknown indication
     Dosage: 3 TO 5 TIMES

REACTIONS (6)
  - Lipoedema [Not Recovered/Not Resolved]
  - Pain in extremity [Not Recovered/Not Resolved]
  - Neck pain [Unknown]
  - Back pain [Unknown]
  - Myalgia [Not Recovered/Not Resolved]
  - Dizziness [Not Recovered/Not Resolved]

NARRATIVE: CASE EVENT DATE: 20200101
